FAERS Safety Report 5194048-X (Version None)
Quarter: 2006Q4

REPORT INFORMATION
  Report Type: 
  Country: None (occurrence: None)
  Receive Date: 20061228
  Receipt Date: 20060924
  Transmission Date: 20070319
  Serious: Yes (Hospitalization, Other)
  Sender: FDA-Public Use
  Company Number: CA-ELI_LILLY_AND_COMPANY-CA200609006507

PATIENT
  Age: 62 Year
  Sex: Male
  Weight: 54.421 kg

DRUGS (3)
  1. FORTEO [Suspect]
     Indication: OSTEOPOROSIS
     Dosage: 20 UG, DAILY (1/D)
     Route: 058
     Dates: start: 20060906, end: 20061216
  2. PAXIL [Concomitant]
     Dosage: 10 MG, UNK
     Dates: end: 20060101
  3. CALCIUM [Concomitant]

REACTIONS (3)
  - CEREBROVASCULAR ACCIDENT [None]
  - HEMIPARESIS [None]
  - HYPERTENSION [None]
